FAERS Safety Report 6750213-9 (Version None)
Quarter: 2010Q2

REPORT INFORMATION
  Report Type: 
  Country: None (occurrence: None)
  Receive Date: 20100601
  Receipt Date: 20100520
  Transmission Date: 20101027
  Serious: Yes (Hospitalization, Other)
  Sender: FDA-Public Use
  Company Number: GB-PFIZER INC-2010063281

PATIENT
  Age: 58 Year
  Sex: Female

DRUGS (10)
  1. CHAMPIX [Suspect]
     Indication: SMOKING CESSATION THERAPY
     Dosage: 1 MG, 2X/DAY
     Route: 048
     Dates: start: 20100422, end: 20100430
  2. METHOTREXATE SODIUM [Suspect]
     Indication: RHEUMATOID ARTHRITIS
     Dosage: 20 MG, WEEKLY
     Route: 048
     Dates: start: 20100416
  3. ADCAL-D3 [Concomitant]
     Indication: OSTEOPOROSIS PROPHYLAXIS
     Dosage: UNK
  4. AMITRIPTYLINE [Concomitant]
     Dosage: UNK
  5. CELECOXIB [Concomitant]
     Dosage: UNK
  6. INFLIXIMAB [Concomitant]
     Dosage: 1 DF EVERY 2 WEEKS
  7. LANSOPRAZOLE [Concomitant]
     Indication: PROPHYLAXIS
     Dosage: UNK
  8. PREDNISOLONE [Concomitant]
     Dosage: 5 MG, 1X/DAY
  9. SULFASALAZINE [Concomitant]
     Dosage: UNK
  10. EUCERIN [Concomitant]

REACTIONS (6)
  - HEADACHE [None]
  - MALAISE [None]
  - MYALGIA [None]
  - NECK PAIN [None]
  - PYREXIA [None]
  - RASH MACULO-PAPULAR [None]
